FAERS Safety Report 24116027 (Version 1)
Quarter: 2024Q3

REPORT INFORMATION
  Report Type: Spontaneous
  Country: US (occurrence: US)
  Receive Date: 20240722
  Receipt Date: 20240722
  Transmission Date: 20241017
  Serious: Yes (Hospitalization)
  Sender: APOTEX
  Company Number: US-APOTEX-2024AP008354

PATIENT
  Age: 59 Year
  Sex: Male

DRUGS (4)
  1. LITHIUM [Interacting]
     Active Substance: LITHIUM
     Indication: Schizoaffective disorder bipolar type
     Dosage: 300 MILLIGRAM, QD
     Route: 065
  2. CAFFEINE [Interacting]
     Active Substance: CAFFEINE
     Indication: Product used for unknown indication
     Dosage: 1027 MILLIGRAM (DERIVED FROM 4 SERVINGS OF MONSTER ENERGY DRINK (160 MG CAFFEINE/SERVING), 3 SERVING
     Route: 048
  3. CAFFEINE [Interacting]
     Active Substance: CAFFEINE
     Dosage: 129 MILLIGRAM (DERIVED FROM 1 COFFEE AND 1 SODA)
     Route: 048
  4. CAFFEINE [Interacting]
     Active Substance: CAFFEINE
     Dosage: 640 MILLIGRAM
     Route: 048

REACTIONS (3)
  - Antipsychotic drug level below therapeutic [Unknown]
  - Drug interaction [Unknown]
  - Mania [Unknown]
